FAERS Safety Report 8072154-X (Version None)
Quarter: 2012Q1

REPORT INFORMATION
  Report Type: 
  Country: None (occurrence: None)
  Receive Date: 20120126
  Receipt Date: 20120113
  Transmission Date: 20120608
  Serious: Yes (Hospitalization)
  Sender: FDA-Public Use
  Company Number: US-ELI_LILLY_AND_COMPANY-US201111003647

PATIENT
  Sex: Female
  Weight: 81.633 kg

DRUGS (9)
  1. CYMBALTA [Suspect]
     Indication: FIBROMYALGIA
     Dosage: 60 MG, QD
     Route: 048
     Dates: start: 20110617
  2. MAXZIDE [Concomitant]
  3. PROAIR HFA [Concomitant]
  4. XANAX [Concomitant]
  5. ABILIFY [Concomitant]
  6. SINGULAIR [Concomitant]
  7. ADVAIR DISKUS 100/50 [Concomitant]
  8. NORCO [Concomitant]
  9. SOMA [Concomitant]

REACTIONS (5)
  - CERVICOBRACHIAL SYNDROME [None]
  - CRYING [None]
  - INTERVERTEBRAL DISC PROTRUSION [None]
  - ANGER [None]
  - INSOMNIA [None]
